FAERS Safety Report 9872680 (Version 2)
Quarter: 2014Q1

REPORT INFORMATION
  Report Type: Other
  Country: US (occurrence: US)
  Receive Date: 20140206
  Receipt Date: 20140206
  Transmission Date: 20141002
  Serious: No
  Sender: FDA-Public Use
  Company Number: US-ACORDA-ACO_100070_2013

PATIENT
  Sex: Female
  Weight: 79.82 kg

DRUGS (2)
  1. AMPYRA [Suspect]
     Indication: ATAXIA
     Dosage: 10 MG, BID
  2. GABAPENTIN [Concomitant]
     Indication: NEURALGIA
     Dosage: 800 QID
     Route: 048

REACTIONS (2)
  - Unevaluable event [Recovered/Resolved]
  - Memory impairment [Recovered/Resolved]
